FAERS Safety Report 9422430 (Version 2)
Quarter: 2013Q3

REPORT INFORMATION
  Report Type: Spontaneous
  Country: US (occurrence: US)
  Receive Date: 20130724
  Receipt Date: 20130731
  Transmission Date: 20140515
  Serious: Yes (Hospitalization)
  Sender: FDA-Public Use
  Company Number: CIO13033458

PATIENT
  Age: 81 Year
  Sex: Female
  Weight: 73.5 kg

DRUGS (3)
  1. ZZZQUIL NIGHTIME SLEEP-AID, WARMING BERRY FLAVOR [Suspect]
     Indication: INSOMNIA
     Route: 048
     Dates: start: 20130609, end: 20130609
  2. OMEGA 3 [Concomitant]
  3. VITAMIN D [Concomitant]

REACTIONS (5)
  - Asthenia [None]
  - Dizziness [None]
  - Visual impairment [None]
  - Hyperhidrosis [None]
  - Insomnia [None]
